FAERS Safety Report 4686480-5 (Version None)
Quarter: 2005Q2

REPORT INFORMATION
  Report Type: 
  Country: None (occurrence: None)
  Receive Date: 20050609
  Receipt Date: 20050530
  Transmission Date: 20051028
  Serious: Yes (Death, Hospitalization)
  Sender: FDA-Public Use
  Company Number: IT-SANOFI-SYNTHELABO-F01200500842

PATIENT
  Sex: Male
  Weight: 77 kg

DRUGS (3)
  1. OXALIPLATIN [Suspect]
     Indication: RECTAL CANCER
     Route: 042
     Dates: start: 20040719, end: 20040719
  2. CAPECITABINE [Suspect]
     Dosage: 825 MG/M2 TWICE DAILY FOR 5 DAYS OF WEEKS 1 TO 5
     Route: 048
     Dates: start: 20040719, end: 20040723
  3. RADIOTHERAPY [Concomitant]
     Indication: COLORECTAL CANCER
     Dosage: 45 GY
     Route: 050
     Dates: start: 20040727, end: 20040727

REACTIONS (5)
  - ELECTROLYTE IMBALANCE [None]
  - FLATULENCE [None]
  - INTESTINAL OBSTRUCTION [None]
  - LOSS OF CONSCIOUSNESS [None]
  - WOUND DEHISCENCE [None]
